FAERS Safety Report 12094712 (Version 2)
Quarter: 2016Q3

REPORT INFORMATION
  Report Type: Report from Study
  Country: UA (occurrence: UA)
  Receive Date: 20160219
  Receipt Date: 20160720
  Transmission Date: 20161109
  Serious: Yes (Hospitalization)
  Sender: FDA-Public Use
  Company Number: UA-BIOGEN-2016BI00188666

PATIENT
  Age: 57 Year
  Sex: Male
  Weight: 65 kg

DRUGS (1)
  1. BG00012 [Suspect]
     Active Substance: DIMETHYL FUMARATE
     Indication: MULTIPLE SCLEROSIS
     Route: 048
     Dates: start: 20110607

REACTIONS (1)
  - Volvulus [Recovered/Resolved]

NARRATIVE: CASE EVENT DATE: 20160105
